FAERS Safety Report 7553450-9 (Version None)
Quarter: 2011Q2

REPORT INFORMATION
  Report Type: 
  Country: None (occurrence: None)
  Receive Date: 20110609
  Receipt Date: 20110527
  Transmission Date: 20111010
  Serious: Yes (Life-Threatening, Other)
  Sender: FDA-Public Use
  Company Number: GER/UKI/11/0018564

PATIENT
  Age: 12 Year
  Sex: Male

DRUGS (2)
  1. FLUOXETINE [Suspect]
     Indication: DEPRESSED MOOD
     Dosage: 10 MG, 1 IN 1 D, ORAL
     Route: 048
     Dates: start: 20100521, end: 20110410
  2. STRATTERA [Suspect]
     Indication: ATTENTION DEFICIT/HYPERACTIVITY DISORDER
     Dosage: 25 MG, 1 IN 1 D, ORAL
     Route: 048
     Dates: start: 20090305, end: 20110410

REACTIONS (1)
  - NEUTROPENIA [None]
